FAERS Safety Report 8922607 (Version 2)
Quarter: 2013Q1

REPORT INFORMATION
  Report Type: Spontaneous
  Country: GB (occurrence: GB)
  Receive Date: 20121123
  Receipt Date: 20130129
  Transmission Date: 20140127
  Serious: Yes (Hospitalization)
  Sender: FDA-Public Use
  Company Number: PHFR2012GB005983

PATIENT
  Age: 23 Year
  Sex: Male

DRUGS (4)
  1. CLOZARIL (CLOZAPINE) [Suspect]
     Indication: SCHIZOPHRENIA
     Dosage: UNK UKN, UNK
     Route: 048
     Dates: start: 20120319
  2. CLOZARIL (CLOZAPINE) [Suspect]
     Dosage: 800 MG, UNK
     Dates: start: 20121009
  3. CLOZARIL (CLOZAPINE) [Suspect]
     Dosage: UNK
     Route: 048
     Dates: start: 20121012, end: 20121107
  4. CLOZARIL (CLOZAPINE) [Suspect]
     Dosage: UNK

REACTIONS (4)
  - Coma [Unknown]
  - Epistaxis [Unknown]
  - Tachycardia [Unknown]
  - Overdose [Recovered/Resolved]
